FAERS Safety Report 18683345 (Version 1)
Quarter: 2020Q4

REPORT INFORMATION
  Report Type: Spontaneous
  Country: US (occurrence: US)
  Receive Date: 20201229
  Receipt Date: 20201229
  Transmission Date: 20210114
  Serious: Yes (Life-Threatening)
  Sender: FDA-Public Use
  Company Number: None

PATIENT
  Age: 73 Year
  Sex: Male
  Weight: 81.4 kg

DRUGS (4)
  1. IMDEVIMAB 1200MG [Suspect]
     Active Substance: IMDEVIMAB
     Indication: COVID-19 PNEUMONIA
     Dosage: ?          OTHER ROUTE:IVPB?
     Dates: start: 20201226, end: 20201227
  2. CASIRIVIMAB 1200MG [Suspect]
     Active Substance: CASIRIVIMAB
     Route: 042
     Dates: start: 20201226, end: 20201227
  3. ACETAMINOPHEN. [Concomitant]
     Active Substance: ACETAMINOPHEN
  4. IOHEXOL [Concomitant]
     Active Substance: IOHEXOL

REACTIONS (5)
  - Anaphylactic reaction [None]
  - Bronchospasm [None]
  - Respiratory symptom [None]
  - Infusion related reaction [None]
  - Pulseless electrical activity [None]

NARRATIVE: CASE EVENT DATE: 20201227
